FAERS Safety Report 7091152-6 (Version None)
Quarter: 2010Q4

REPORT INFORMATION
  Report Type: 
  Country: None (occurrence: None)
  Receive Date: 20101105
  Receipt Date: 20101105
  Transmission Date: 20110411
  Serious: Yes (Other)
  Sender: FDA-Public Use
  Company Number: None

PATIENT
  Age: 50 Year
  Sex: Male
  Weight: 81.6475 kg

DRUGS (3)
  1. PAROXETINE HCL [Suspect]
     Indication: DEPRESSION
     Dosage: 37.5 1X/DAY
     Dates: start: 20100501, end: 20101105
  2. PAROXETINE HCL [Suspect]
     Indication: ANXIETY
  3. PAXIL [Suspect]

REACTIONS (5)
  - DEPRESSION [None]
  - PANIC ATTACK [None]
  - PRODUCT FORMULATION ISSUE [None]
  - PRODUCT SIZE ISSUE [None]
  - SUICIDAL IDEATION [None]
